FAERS Safety Report 6618043-6 (Version None)
Quarter: 2010Q1

REPORT INFORMATION
  Report Type: 
  Country: None (occurrence: None)
  Receive Date: 20100223
  Receipt Date: 20091120
  Transmission Date: 20100710
  Serious: Yes (Hospitalization)
  Sender: FDA-Public Use
  Company Number: 8055103

PATIENT
  Sex: Female
  Weight: 109 kg

DRUGS (11)
  1. CERTOLIZUMAB PEGOL (UCB, INC) [Suspect]
     Indication: CROHN'S DISEASE
     Dosage: SUBCUTANEOUS
     Route: 058
     Dates: start: 20090301
  2. FLAGYL [Concomitant]
  3. NEXIUM [Concomitant]
  4. REGLAN [Concomitant]
  5. XANAX [Concomitant]
  6. TRAZODONE HCL [Concomitant]
  7. CYMBALTA [Concomitant]
  8. OXYCONTIN [Concomitant]
  9. DURAGESIC-100 [Concomitant]
  10. ZOFRAN [Concomitant]
  11. COLACE [Concomitant]

REACTIONS (4)
  - COLONIC STENOSIS [None]
  - CONSTIPATION [None]
  - CROHN'S DISEASE [None]
  - DIARRHOEA [None]
